FAERS Safety Report 15391336 (Version 1)
Quarter: 2018Q3

REPORT INFORMATION
  Report Type: Spontaneous
  Country: US (occurrence: US)
  Receive Date: 20180917
  Receipt Date: 20180917
  Transmission Date: 20181010
  Serious: No
  Sender: FDA-Public Use
  Company Number: US-GLAXOSMITHKLINE-US2018162426

PATIENT
  Age: 59 Year
  Sex: Female

DRUGS (1)
  1. NUCALA [Suspect]
     Active Substance: MEPOLIZUMAB
     Indication: PRODUCT USED FOR UNKNOWN INDICATION
     Dosage: UNK UNK, U
     Dates: start: 20180905

REACTIONS (12)
  - Musculoskeletal pain [Unknown]
  - Rhinorrhoea [Unknown]
  - Pyrexia [Unknown]
  - Injection site reaction [Unknown]
  - Bone pain [Unknown]
  - Myalgia [Unknown]
  - Sinus disorder [Unknown]
  - Back pain [Unknown]
  - Influenza like illness [Unknown]
  - Dyspnoea [Unknown]
  - Respiratory tract congestion [Unknown]
  - Nausea [Unknown]

NARRATIVE: CASE EVENT DATE: 20180905
